FAERS Safety Report 25036162 (Version 3)
Quarter: 2025Q1

REPORT INFORMATION
  Report Type: Spontaneous
  Country: JP (occurrence: JP)
  Receive Date: 20250304
  Receipt Date: 20250318
  Transmission Date: 20250409
  Serious: Yes (Hospitalization)
  Sender: PFIZER
  Company Number: JP-MLMSERVICE-20250221-PI412012-00218-1

PATIENT
  Age: 65 Year
  Sex: Female
  Weight: 54.5 kg

DRUGS (1)
  1. METHOTREXATE SODIUM [Suspect]
     Active Substance: METHOTREXATE SODIUM
     Indication: Rheumatoid arthritis
     Dates: start: 2006, end: 2023

REACTIONS (2)
  - Diffuse large B-cell lymphoma [Recovering/Resolving]
  - Myelitis [Recovering/Resolving]
